FAERS Safety Report 7153614-2 (Version None)
Quarter: 2010Q4

REPORT INFORMATION
  Report Type: 
  Country: None (occurrence: None)
  Receive Date: 20101208
  Receipt Date: 20101208
  Transmission Date: 20110411
  Serious: No
  Sender: FDA-Public Use
  Company Number: None

PATIENT
  Age: 79 Year
  Sex: Male

DRUGS (8)
  1. REVLIMID [Suspect]
     Indication: MULTIPLE MYELOMA
     Dosage: 25MG DAILY X21D/28D ORALLY
     Route: 048
     Dates: start: 20100101, end: 20100801
  2. REVLIMID [Suspect]
     Dosage: 15MG DAILY X21D/28D ORALLY
     Route: 048
     Dates: start: 20100801, end: 20101001
  3. DEXAMETHASONE [Concomitant]
  4. PAMIDRONATE DISODIUM [Concomitant]
  5. LISINOPRIL [Concomitant]
  6. METFORMIN HCL [Concomitant]
  7. SIMVASTATIN [Concomitant]
  8. HYDROCHLOROTHIAZIDE [Concomitant]

REACTIONS (1)
  - THROMBOCYTOPENIA [None]
